FAERS Safety Report 5593499-9 (Version None)
Quarter: 2008Q1

REPORT INFORMATION
  Report Type: 
  Country: None (occurrence: None)
  Receive Date: 20080116
  Receipt Date: 20080109
  Transmission Date: 20080703
  Serious: Yes (Other)
  Sender: FDA-Public Use
  Company Number: FR-BRISTOL-MYERS SQUIBB COMPANY-14036081

PATIENT
  Age: 42 Year
  Sex: Male

DRUGS (21)
  1. REYATAZ [Suspect]
     Indication: HIV TEST
     Route: 048
     Dates: start: 20070517
  2. TRUVADA [Suspect]
     Indication: HIV TEST
     Route: 048
     Dates: start: 20070517
  3. NORVIR [Suspect]
     Indication: HIV TEST
     Route: 048
     Dates: start: 20070517
  4. SEROPRAM [Suspect]
  5. EFFEXOR [Suspect]
     Dosage: IN MORNING
     Dates: start: 20040201, end: 20070822
  6. STILNOX [Suspect]
     Dosage: 1DOSAGE FORM = 1 TABLET IN THE EVENING
     Dates: start: 20070201, end: 20070619
  7. FUZEON [Suspect]
     Indication: HIV TEST
     Dosage: 1 DOSAGE FORM = 90MG/ML
     Route: 058
     Dates: start: 20070517
  8. PROZAC [Concomitant]
  9. VILOXAZINE HCL [Concomitant]
  10. BENZODIAZEPINE [Concomitant]
  11. ATARAX [Concomitant]
     Dosage: IN THE EVENING
     Dates: start: 20040201, end: 20070619
  12. IMOVANE [Concomitant]
     Dosage: 1 DOSAGE FORM = 1 TABLET IN THE EVENING
     Dates: start: 20070619, end: 20070720
  13. XANAX [Concomitant]
     Dosage: DOSAGE FORM=0.25 AND 0.50 MG
     Dates: start: 20070723, end: 20070822
  14. NOCTRAN [Concomitant]
     Dosage: 1 DOSAGE FORM = 1TABLET IN THE EVENING
     Dates: start: 20070820
  15. TRIMEPRAZINE TAB [Concomitant]
     Dosage: IN THE EVENING
     Dates: start: 20070822
  16. BACTRIM [Concomitant]
     Dosage: 1 DOSAGE FORM = 1TABLET IN THE MORNING
     Dates: start: 19930601
  17. NISIS [Concomitant]
     Dosage: IN THE MORNING
     Dates: start: 20060301
  18. LIPUR [Concomitant]
     Dosage: IN THE EVENING
     Dates: start: 20070314
  19. ZELITREX [Concomitant]
     Dates: start: 20070723, end: 20070730
  20. DEXERYL [Concomitant]
     Dosage: OINTMENT
     Dates: start: 20070801
  21. DIPROSONE [Concomitant]
     Dosage: OINTMENT
     Dates: start: 20070801

REACTIONS (4)
  - ANXIETY [None]
  - DEPRESSION [None]
  - INSOMNIA [None]
  - IRRITABILITY [None]
